FAERS Safety Report 8943657 (Version 2)
Quarter: 2013Q1

REPORT INFORMATION
  Report Type: Spontaneous
  Country: JP (occurrence: JP)
  Receive Date: 20121204
  Receipt Date: 20130121
  Transmission Date: 20140127
  Serious: Yes (Hospitalization)
  Sender: FDA-Public Use
  Company Number: JP-009507513-1211JPN012273

PATIENT
  Age: 50 Year
  Sex: Female
  Weight: 56 kg

DRUGS (5)
  1. SINGULAIR [Suspect]
     Indication: ASTHMA
     Dosage: 10 MG, QD
     Route: 048
     Dates: start: 20120106, end: 20120411
  2. ADOAIR [Concomitant]
     Dosage: 500 MICROGRAM, BID
     Route: 055
     Dates: start: 20120106, end: 20120106
  3. SPIRIVA [Concomitant]
     Dosage: 18 MICROGRAM, QD
     Route: 055
     Dates: start: 20120106, end: 20120112
  4. PARIET [Concomitant]
     Dosage: 10 MG, QD
     Route: 048
     Dates: start: 20120106, end: 20120110
  5. PREDONINE [Concomitant]
     Dosage: 10 MG, BID
     Route: 048
     Dates: start: 20120106, end: 20120110

REACTIONS (1)
  - Allergic granulomatous angiitis [Recovering/Resolving]
